FAERS Safety Report 4431023-4 (Version None)
Quarter: 2004Q3

REPORT INFORMATION
  Report Type: 
  Country: None (occurrence: None)
  Receive Date: 20040824
  Receipt Date: 20030918
  Transmission Date: 20050211
  Serious: No
  Sender: FDA-Public Use
  Company Number: US-BRISTOL-MYERS SQUIBB COMPANY-12389383

PATIENT
  Age: 52 Year
  Sex: Female
  Weight: 55 kg

DRUGS (1)
  1. MYCOSTATIN [Suspect]
     Indication: LYME DISEASE
     Dosage: 500,000U
     Route: 048

REACTIONS (1)
  - NAUSEA [None]
